FAERS Safety Report 4884814-X (Version None)
Quarter: 2005Q4

REPORT INFORMATION
  Report Type: 
  Country: None (occurrence: None)
  Receive Date: 20051201
  Receipt Date: 20050919
  Transmission Date: 20060501
  Serious: No
  Sender: FDA-Public Use
  Company Number: 2005PV002275

PATIENT
  Age: 47 Year
  Sex: Female
  Weight: 72.5755 kg

DRUGS (9)
  1. BYETTA [Suspect]
     Indication: DIABETES MELLITUS NON-INSULIN-DEPENDENT
     Dosage: 5 MCG; BID; SC; 5 MCG; BID; SC
     Route: 058
     Dates: start: 20050907, end: 20050912
  2. BYETTA [Suspect]
     Indication: DIABETES MELLITUS NON-INSULIN-DEPENDENT
     Dosage: 5 MCG; BID; SC; 5 MCG; BID; SC
     Route: 058
     Dates: start: 20050914
  3. AMARYL [Suspect]
     Indication: DIABETES MELLITUS NON-INSULIN-DEPENDENT
     Dosage: 1 MG; BID; PO
     Route: 048
     Dates: start: 20040101, end: 20050912
  4. ACTOS [Concomitant]
  5. AMARYL [Concomitant]
  6. SYNTHROID [Concomitant]
  7. HYDROXYCHLOROQUINE SULFATE [Concomitant]
  8. SPIRONOLACTONE [Concomitant]
  9. DICLOFENAC [Concomitant]

REACTIONS (3)
  - BLOOD GLUCOSE DECREASED [None]
  - DIZZINESS [None]
  - HEART RATE INCREASED [None]
